FAERS Safety Report 6445519-7 (Version None)
Quarter: 2009Q4

REPORT INFORMATION
  Report Type: 
  Country: None (occurrence: None)
  Receive Date: 20091110
  Receipt Date: 20090825
  Transmission Date: 20100525
  Serious: No
  Sender: FDA-Public Use
  Company Number: 1000008481

PATIENT
  Age: 53 Year
  Sex: Female

DRUGS (14)
  1. SAVELLA [Suspect]
     Indication: FIBROMYALGIA
     Dosage: SEE IMAGE
     Route: 048
     Dates: start: 20090823, end: 20090823
  2. SAVELLA [Suspect]
     Indication: FIBROMYALGIA
     Dosage: SEE IMAGE
     Route: 048
     Dates: start: 20090824, end: 20090825
  3. SAVELLA [Suspect]
     Indication: FIBROMYALGIA
     Dosage: SEE IMAGE
     Route: 048
     Dates: start: 20090826
  4. ATENOLOL [Concomitant]
  5. QUINAPRIL [Concomitant]
  6. LYRICA [Concomitant]
  7. METHOTREXATE [Concomitant]
  8. LEUCOVORIN CALCIUM [Concomitant]
  9. PLAQUENIL [Concomitant]
  10. PREVACID [Concomitant]
  11. SINGULAIR [Concomitant]
  12. VOLTAREN [Concomitant]
  13. PERCOCET [Concomitant]
  14. FENTANYL-100 [Concomitant]

REACTIONS (1)
  - PRURITUS [None]
